FAERS Safety Report 13435913 (Version 8)
Quarter: 2020Q4

REPORT INFORMATION
  Report Type: Spontaneous
  Country: US (occurrence: US)
  Receive Date: 20170413
  Receipt Date: 20201015
  Transmission Date: 20210113
  Serious: Yes (Hospitalization, Other)
  Sender: FDA-Public Use
  Company Number: US-PFIZER INC-2017149577

PATIENT
  Age: 71 Year
  Sex: Female
  Weight: 82 kg

DRUGS (26)
  1. FOLIC ACID. [Concomitant]
     Active Substance: FOLIC ACID
     Indication: ANAEMIA
     Dosage: 1 MG, 1X/DAY
     Dates: start: 2011
  2. LACTULOSE. [Concomitant]
     Active Substance: LACTULOSE
     Indication: CONSTIPATION
     Dosage: 40 MG, AS NEEDED
  3. LANTUS [Concomitant]
     Active Substance: INSULIN GLARGINE
     Indication: DIABETES MELLITUS
     Dosage: 8-10 UNITS, DAILY
     Dates: start: 2008
  4. LIPITOR [Concomitant]
     Active Substance: ATORVASTATIN CALCIUM
     Indication: BLOOD CHOLESTEROL ABNORMAL
     Dosage: 40 MG, DAILY
  5. BRIMONIDINE [Concomitant]
     Active Substance: BRIMONIDINE TARTRATE
     Indication: EYE DISORDER
     Dosage: 1 GTT, 2X/DAY (MORNING AND NIGHT)
     Route: 047
     Dates: start: 2015
  6. ILEVRO [Concomitant]
     Active Substance: NEPAFENAC
     Indication: EYE DISORDER
     Dosage: 1 GTT, 1X/DAY (AT BEDTIME)
     Route: 047
     Dates: start: 2014
  7. BIOTIN [Concomitant]
     Active Substance: BIOTIN
     Indication: NAIL DISORDER
     Dosage: 5000 UG, 1X/DAY
     Dates: start: 2011
  8. PROCRIT [Concomitant]
     Active Substance: ERYTHROPOIETIN
     Dosage: UNK, 2X/WEEK
     Dates: start: 201002
  9. CLONAZEPAM. [Concomitant]
     Active Substance: CLONAZEPAM
     Indication: MUSCLE TWITCHING
     Dosage: 0.5 MG, 2X/DAY (MORNING AND EVENING)
     Dates: start: 201612
  10. ASPIRIN. [Concomitant]
     Active Substance: ASPIRIN
     Indication: ANTICOAGULANT THERAPY
     Dosage: 81 MG, 1X/DAY
     Dates: start: 2010
  11. REVATIO [Suspect]
     Active Substance: SILDENAFIL CITRATE
     Dosage: 20 MG, 2X/DAY (ON DIALYSIS DAYS)
     Route: 048
  12. RENVELA [Concomitant]
     Active Substance: SEVELAMER CARBONATE
     Dosage: REDUCED (TO TAKE WITH LUNCH)
     Dates: start: 2015
  13. ATORVASTATIN [Concomitant]
     Active Substance: ATORVASTATIN
     Indication: BLOOD CHOLESTEROL ABNORMAL
     Dosage: 40 MG, DAILY
  14. REVATIO [Suspect]
     Active Substance: SILDENAFIL CITRATE
     Indication: PULMONARY HYPERTENSION
     Dosage: 20 MG, 3X/DAY
     Route: 048
     Dates: start: 1994
  15. GLUCOSAMINE CHONDROITIN [Concomitant]
     Active Substance: CHONDROITIN SULFATE (BOVINE)\GLUCOSAMINE HYDROCHLORIDE
     Indication: ARTHRALGIA
     Dosage: UNK, 1X/DAY
     Dates: start: 2011
  16. PROCRIT [Concomitant]
     Active Substance: ERYTHROPOIETIN
     Indication: ANAEMIA
     Dosage: UNK
     Dates: end: 200912
  17. PROCRIT [Concomitant]
     Active Substance: ERYTHROPOIETIN
     Dosage: UNK, 3X/WEEK INCLUDED DIALYSIS
     Dates: start: 2014
  18. RENVELA [Concomitant]
     Active Substance: SEVELAMER CARBONATE
     Indication: PHOSPHORUS METABOLISM DISORDER
     Dosage: 800 MG, UNK (WITH MEALS AND SNACKS)
     Dates: start: 201401
  19. LUTEIN [Concomitant]
     Active Substance: LUTEIN
     Indication: EYE DISORDER
     Dosage: 20 MG, 1X/DAY
     Dates: start: 2011
  20. ICAPS [Concomitant]
     Active Substance: MINERALS\VITAMINS
     Indication: VITAMIN SUPPLEMENTATION
     Dosage: 1 DF (1 CAPSULE), 2X/DAY
     Dates: start: 2011
  21. REVATIO [Suspect]
     Active Substance: SILDENAFIL CITRATE
     Indication: SARCOIDOSIS
     Dosage: 20 MG, 3X/DAY
     Route: 048
     Dates: end: 20190626
  22. REVATIO [Suspect]
     Active Substance: SILDENAFIL CITRATE
     Dosage: 20 MG, 3X/DAY (EVERY 8 HOURS)
     Route: 048
     Dates: start: 201804
  23. BIOTIN [Concomitant]
     Active Substance: BIOTIN
     Indication: HAIR DISORDER
  24. RENA-VITE [Concomitant]
     Active Substance: ASCORBIC ACID\BIOTIN\CALCIUM PANTOTHENATE\CYANOCOBALAMIN\FOLIC ACID\NIACINAMIDE\PYRIDOXINE HYDROCHLORIDE\RIBOFLAVIN\THIAMINE MONONITRATE
     Indication: VITAMIN SUPPLEMENTATION
     Dosage: 1 DF (1 TABLET), DAILY
     Dates: start: 2014
  25. PROCRIT [Concomitant]
     Active Substance: ERYTHROPOIETIN
     Dosage: UNK, ONCE TRIWEEKLY
  26. PROCRIT [Concomitant]
     Active Substance: ERYTHROPOIETIN
     Dosage: UNK, 3X/WEEK
     Dates: start: 2011

REACTIONS (16)
  - Renal disorder [Unknown]
  - Chills [Recovering/Resolving]
  - Product dose omission issue [Not Recovered/Not Resolved]
  - Headache [Recovered/Resolved]
  - Pulmonary arterial hypertension [Unknown]
  - Chronic kidney disease [Unknown]
  - Oedema peripheral [Unknown]
  - End stage renal disease [Unknown]
  - Gait disturbance [Unknown]
  - Vertigo [Recovered/Resolved]
  - Muscle twitching [Unknown]
  - Lower limb fracture [Unknown]
  - Incorrect dose administered [Unknown]
  - Dizziness [Unknown]
  - Dyspnoea [Unknown]
  - Cough [Unknown]

NARRATIVE: CASE EVENT DATE: 2015
